FAERS Safety Report 4463216-4 (Version None)
Quarter: 2004Q3

REPORT INFORMATION
  Report Type: 
  Country: None (occurrence: None)
  Receive Date: 20040930
  Receipt Date: 20040929
  Transmission Date: 20050211
  Serious: Yes (Other)
  Sender: FDA-Public Use
  Company Number: JP-ROCHE-381573

PATIENT
  Age: 66 Year
  Sex: Male

DRUGS (3)
  1. NICARDIPINE HCL [Suspect]
     Indication: HYPERTENSION
     Route: 048
     Dates: start: 20040715
  2. NICARDIPINE HCL [Suspect]
     Route: 048
     Dates: end: 20040715
  3. TRANQUILLIZER [Concomitant]
     Route: 048

REACTIONS (6)
  - BLOOD PRESSURE INADEQUATELY CONTROLLED [None]
  - FACE INJURY [None]
  - FALL [None]
  - FEELING ABNORMAL [None]
  - LACERATION [None]
  - TOOTH INJURY [None]
